FAERS Safety Report 17225148 (Version 1)
Quarter: 2020Q1

REPORT INFORMATION
  Report Type: Spontaneous
  Country: US (occurrence: US)
  Receive Date: 20200101
  Receipt Date: 20200101
  Transmission Date: 20200409
  Serious: Yes (Disabling)
  Sender: FDA-Public Use
  Company Number: None

PATIENT
  Age: 59 Year
  Sex: Female
  Weight: 65.7 kg

DRUGS (8)
  1. VIIBRYD [Suspect]
     Active Substance: VILAZODONE HYDROCHLORIDE
     Indication: ANXIETY
     Dosage: ?          QUANTITY:1 TABLET(S);?
     Route: 048
     Dates: start: 20190715, end: 20190828
  2. CALCIUM 600 MG [Concomitant]
  3. VITAMIN D3 4000 IU [Concomitant]
  4. METHYLFOLATE [Concomitant]
     Active Substance: LEVOMEFOLATE CALCIUM
  5. DESVENLAFAXINE 100MG ER [Concomitant]
     Active Substance: DESVENLAFAXINE
  6. VENLAFAXINE [Concomitant]
     Active Substance: VENLAFAXINE HYDROCHLORIDE
  7. VIIBRYD [Suspect]
     Active Substance: VILAZODONE HYDROCHLORIDE
     Indication: DEPRESSION
     Dosage: ?          QUANTITY:1 TABLET(S);?
     Route: 048
     Dates: start: 20190715, end: 20190828
  8. METHYLCOBALAMIN. [Concomitant]
     Active Substance: METHYLCOBALAMIN

REACTIONS (10)
  - Ventricular extrasystoles [None]
  - Mitral valve incompetence [None]
  - Cardiac steatosis [None]
  - Heart rate increased [None]
  - Palpitations [None]
  - Blood pressure increased [None]
  - Supraventricular tachycardia [None]
  - Sleep disorder [None]
  - Tricuspid valve incompetence [None]
  - Atrial septal defect [None]

NARRATIVE: CASE EVENT DATE: 20190805
